FAERS Safety Report 5849838-4 (Version None)
Quarter: 2008Q3

REPORT INFORMATION
  Report Type: 
  Country: None (occurrence: None)
  Receive Date: 20080815
  Receipt Date: 20080805
  Transmission Date: 20090109
  Serious: No
  Sender: FDA-Public Use
  Company Number: 2008-181641-NL

PATIENT
  Age: 61 Year
  Sex: Male

DRUGS (7)
  1. MIRTAZAPINE [Suspect]
     Indication: FLAT AFFECT
     Dosage: 15 MG
  2. MIRTAZAPINE [Suspect]
     Indication: INSOMNIA
     Dosage: 15 MG
  3. MIRTAZAPINE [Suspect]
     Indication: POOR QUALITY SLEEP
     Dosage: 15 MG
  4. METFORMIN HCL [Concomitant]
  5. GLICLAZIDE [Concomitant]
  6. IRBESARTAN [Concomitant]
  7. HYDROCHLOROTHIAZIDE [Concomitant]

REACTIONS (1)
  - HYPONATRAEMIA [None]
